FAERS Safety Report 4664595-5 (Version None)
Quarter: 2005Q2

REPORT INFORMATION
  Report Type: 
  Country: None (occurrence: None)
  Receive Date: 20050516
  Receipt Date: 20050516
  Transmission Date: 20051028
  Serious: Yes (Disabling)
  Sender: FDA-Public Use
  Company Number: None

PATIENT
  Sex: Female
  Weight: 72.5755 kg

DRUGS (4)
  1. BEXTRA [Suspect]
     Indication: ANTIINFLAMMATORY THERAPY
     Dosage: 2 TIMES DAILY
     Dates: start: 20020101, end: 20050101
  2. BEXTRA [Suspect]
     Indication: ARTHRITIS
     Dosage: 2 TIMES DAILY
     Dates: start: 20020101, end: 20050101
  3. TRIAMTERENE AND HYDROCHLOROTHIAZIDE [Concomitant]
  4. OMEPRAZOLE [Concomitant]

REACTIONS (5)
  - EROSIVE OESOPHAGITIS [None]
  - GASTRIC DISORDER [None]
  - GASTRITIS [None]
  - GASTROOESOPHAGEAL REFLUX DISEASE [None]
  - PHARYNGEAL OEDEMA [None]
